FAERS Safety Report 14730566 (Version 1)
Quarter: 2018Q2

REPORT INFORMATION
  Report Type: Report from Study
  Country: CA (occurrence: CA)
  Receive Date: 20180406
  Receipt Date: 20180406
  Transmission Date: 20180711
  Serious: Yes (Other)
  Sender: FDA-Public Use
  Company Number: PHHY2013CA060300

PATIENT
  Sex: Female
  Weight: 54 kg

DRUGS (3)
  1. EXTAVIA [Suspect]
     Active Substance: INTERFERON BETA-1B
     Indication: RELAPSING-REMITTING MULTIPLE SCLEROSIS
     Dosage: 4 MIU, QOD
     Route: 058
     Dates: start: 20130513
  2. EXTAVIA [Suspect]
     Active Substance: INTERFERON BETA-1B
     Dosage: 8 MIU, QOD
     Route: 058
  3. EXTAVIA [Suspect]
     Active Substance: INTERFERON BETA-1B
     Dosage: 8 MIU, QW3
     Route: 058
     Dates: start: 201308, end: 2017

REACTIONS (10)
  - Asthenia [Unknown]
  - Neurodegenerative disorder [Unknown]
  - Injection site erythema [Not Recovered/Not Resolved]
  - Ill-defined disorder [Unknown]
  - Limb mass [Unknown]
  - Hypoaesthesia [Unknown]
  - Myalgia [Unknown]
  - Chills [Unknown]
  - Injection site hypersensitivity [Unknown]
  - Injection site swelling [Unknown]
